FAERS Safety Report 22606349 (Version 4)
Quarter: 2024Q2

REPORT INFORMATION
  Report Type: Spontaneous
  Country: PT (occurrence: PT)
  Receive Date: 20230615
  Receipt Date: 20240611
  Transmission Date: 20240715
  Serious: Yes (Other)
  Sender: FDA-Public Use
  Company Number: PT-BAYER-2023A070990

PATIENT
  Age: 36 Year
  Sex: Female

DRUGS (1)
  1. LEVONORGESTREL [Suspect]
     Active Substance: LEVONORGESTREL
     Indication: Product used for unknown indication
     Route: 015

REACTIONS (8)
  - Pregnancy with contraceptive device [Unknown]
  - Drug ineffective [Unknown]
  - Cytomegalovirus test positive [Unknown]
  - Device dislocation [Unknown]
  - Breast discomfort [Unknown]
  - Hypertension [Unknown]
  - Nausea [Unknown]
  - Dyspepsia [Unknown]
